FAERS Safety Report 18904586 (Version 2)
Quarter: 2021Q2

REPORT INFORMATION
  Report Type: Report from Study
  Country: CN (occurrence: CN)
  Receive Date: 20210217
  Receipt Date: 20210504
  Transmission Date: 20210717
  Serious: Yes (Death, Hospitalization)
  Sender: FDA-Public Use
  Company Number: CN-ROCHE-2610672

PATIENT
  Age: 69 Year
  Sex: Male
  Weight: 56 kg

DRUGS (13)
  1. ATEZOLIZUMAB. [Suspect]
     Active Substance: ATEZOLIZUMAB
     Indication: NON-SMALL CELL LUNG CANCER METASTATIC
     Dosage: DATE OF LAST DOSE PRIOR TO AE (DYPLOPIA): 24/JUN/2020
     Route: 041
     Dates: start: 20200603
  2. CLINDAMYCIN HYDROCHLORIDE. [Concomitant]
     Active Substance: CLINDAMYCIN HYDROCHLORIDE
     Dates: start: 20200616, end: 20200616
  3. CEFDINIR. [Concomitant]
     Active Substance: CEFDINIR
     Dosage: 1 UNIT NOT REPORTED
     Dates: start: 20200601, end: 20200605
  4. POLYSACCHARIDE IRON [Concomitant]
     Dosage: 1 UNIT NOT REPORTED
     Dates: start: 20200601, end: 20200611
  5. DICLOFENAC DIETHYLAMINE [Concomitant]
     Active Substance: DICLOFENAC DIETHYLAMINE
     Dates: start: 20200527, end: 20200527
  6. HEPARIN CALCIUM [Concomitant]
     Active Substance: HEPARIN CALCIUM
     Dosage: LOW?MOLECULAR?WEIGHT HEPARIN CALCIUM INJECTION?TOTAL DAILY DOSE: 4100 (UNIT)
     Dates: start: 20200526, end: 20200528
  7. CELECOXIB. [Concomitant]
     Active Substance: CELECOXIB
     Dosage: 1 UNIT NOT REPORTED
     Dates: start: 20200616, end: 20200622
  8. ESCULIN [Concomitant]
     Active Substance: ESCULIN
     Dosage: TOTAL DAILY DOSE: 1 DRIP
     Dates: start: 20200721
  9. GINKGO DAMO INJECTION [Concomitant]
     Dates: start: 20200721
  10. ACETYLCYSTEINE. [Concomitant]
     Active Substance: ACETYLCYSTEINE
     Dates: start: 20200528, end: 20200601
  11. ESCULIN AND DIGITALISGLYCOSIDES [Concomitant]
     Dates: start: 20200721
  12. SODIUM HYALURONATE [Concomitant]
     Active Substance: HYALURONATE SODIUM
     Dates: start: 20200721
  13. POLYSACCHARIDE IRON [Concomitant]
     Dates: start: 20200601

REACTIONS (3)
  - Diplopia [Recovering/Resolving]
  - Peripheral arterial occlusive disease [Recovering/Resolving]
  - Vitreous opacities [Recovering/Resolving]

NARRATIVE: CASE EVENT DATE: 20200621
